FAERS Safety Report 14981986 (Version 7)
Quarter: 2019Q3

REPORT INFORMATION
  Report Type: Report from Study
  Country: US (occurrence: US)
  Receive Date: 20180607
  Receipt Date: 20190826
  Transmission Date: 20191004
  Serious: Yes (Hospitalization, Other)
  Sender: FDA-Public Use
  Company Number: US-ROCHE-2128296

PATIENT
  Age: 54 Year
  Sex: Female
  Weight: 108.96 kg

DRUGS (23)
  1. MAGNESIUM CITRATE. [Concomitant]
     Active Substance: MAGNESIUM CITRATE
     Route: 065
  2. FRANKINCENSE [Concomitant]
     Indication: ANXIETY
     Dosage: OIL CAPSULES
     Route: 065
  3. VITAMIN B COMPLEX [Concomitant]
     Active Substance: CYANOCOBALAMIN\DEXPANTHENOL\NIACINAMIDE\PYRIDOXINE HYDROCHLORIDE\RIBOFLAVIN 5^-PHOSPHATE SODIUM\THIAMINE HYDROCHLORIDE\VITAMIN B COMPLEX
     Route: 065
  4. VALIUM [Suspect]
     Active Substance: DIAZEPAM
     Indication: ANXIETY
     Dosage: AT NIGHT BEFORE BEDTIME?SHE TOOK AS REQUIRED
     Route: 048
     Dates: start: 1998
  5. VALIUM [Suspect]
     Active Substance: DIAZEPAM
     Indication: MUSCLE SPASTICITY
  6. COPAXONE [Suspect]
     Active Substance: GLATIRAMER ACETATE
     Indication: PRODUCT USED FOR UNKNOWN INDICATION
     Route: 065
  7. ADVIL [IBUPROFEN] [Concomitant]
     Active Substance: IBUPROFEN
     Dosage: PRN EVERY 6 TO 8 HOURS
     Route: 065
  8. VITAMIN D3 [Concomitant]
     Active Substance: CHOLECALCIFEROL
     Route: 065
  9. GARLIC [ALLIUM SATIVUM] [Concomitant]
     Active Substance: GARLIC
     Route: 065
  10. OCREVUS [Suspect]
     Active Substance: OCRELIZUMAB
     Dosage: FIRST FULL DOSE; ONGOING:YES
     Route: 042
     Dates: start: 20181115
  11. AVONEX [Suspect]
     Active Substance: INTERFERON BETA-1A
     Indication: MULTIPLE SCLEROSIS
     Route: 065
  12. CANNABIS [Concomitant]
     Active Substance: CANNABIS SATIVA SUBSP. INDICA TOP
     Indication: MUSCLE SPASTICITY
     Route: 065
  13. OREGANO. [Concomitant]
     Active Substance: OREGANO
     Indication: ANXIETY
     Dosage: OIL CAPSULES
     Route: 065
  14. OCREVUS [Suspect]
     Active Substance: OCRELIZUMAB
     Dosage: SECOND HALF DOSE;
     Route: 042
     Dates: start: 20180512
  15. CINNAMON [CINNAMOMUM CASSIA] [Concomitant]
     Route: 065
  16. PLEGRIDY [Suspect]
     Active Substance: PEGINTERFERON BETA-1A
     Indication: PRODUCT USED FOR UNKNOWN INDICATION
     Route: 065
  17. LISINOPRIL. [Concomitant]
     Active Substance: LISINOPRIL
     Indication: RED BLOOD CELL COUNT INCREASED
     Route: 065
  18. TURMERIC [CURCUMA LONGA] [Concomitant]
  19. LISINOPRIL. [Concomitant]
     Active Substance: LISINOPRIL
     Route: 065
  20. OCREVUS [Suspect]
     Active Substance: OCRELIZUMAB
     Indication: RELAPSING-REMITTING MULTIPLE SCLEROSIS
     Dosage: HALF DOSE
     Route: 042
     Dates: start: 20180430
  21. PNEUMOCOCCAL VACCINE POLYVALENT NOS [Concomitant]
     Active Substance: PNEUMOCOCCAL VACCINE POLYVALENT
  22. LISINOPRIL. [Concomitant]
     Active Substance: LISINOPRIL
     Indication: BLOOD PRESSURE INCREASED
     Route: 065
     Dates: start: 201611
  23. ECHINACEA [ECHINACEA SPP.] [Concomitant]
     Route: 065

REACTIONS (27)
  - Blood pressure decreased [Unknown]
  - Pain [Unknown]
  - Alopecia [Not Recovered/Not Resolved]
  - Asthenia [Not Recovered/Not Resolved]
  - Feeling abnormal [Unknown]
  - Urinary tract infection [Recovered/Resolved]
  - Rash [Unknown]
  - Blood magnesium decreased [Not Recovered/Not Resolved]
  - Lethargy [Unknown]
  - Red blood cell count increased [Not Recovered/Not Resolved]
  - Weight decreased [Unknown]
  - Influenza like illness [Unknown]
  - Myalgia [Not Recovered/Not Resolved]
  - Malaise [Unknown]
  - Weight increased [Not Recovered/Not Resolved]
  - Fall [Unknown]
  - Paralysis [Not Recovered/Not Resolved]
  - Blood pressure increased [Unknown]
  - Blood potassium decreased [Not Recovered/Not Resolved]
  - Multiple sclerosis [Unknown]
  - Urinary incontinence [Unknown]
  - Escherichia test positive [Recovered/Resolved]
  - Burning sensation [Not Recovered/Not Resolved]
  - Muscle spasms [Not Recovered/Not Resolved]
  - Muscle tightness [Not Recovered/Not Resolved]
  - Weight fluctuation [Recovering/Resolving]
  - Decreased immune responsiveness [Not Recovered/Not Resolved]

NARRATIVE: CASE EVENT DATE: 20180514
